FAERS Safety Report 7418325-4 (Version None)
Quarter: 2011Q2

REPORT INFORMATION
  Report Type: 
  Country: None (occurrence: None)
  Receive Date: 20110415
  Receipt Date: 20110407
  Transmission Date: 20111010
  Serious: Yes (Other)
  Sender: FDA-Public Use
  Company Number: A0886209A

PATIENT
  Age: 53 Year
  Sex: Male

DRUGS (1)
  1. ADVAIR HFA [Suspect]
     Route: 055
     Dates: start: 20091119

REACTIONS (3)
  - DIABETES MELLITUS [None]
  - GENERAL PHYSICAL HEALTH DETERIORATION [None]
  - RENAL DISORDER [None]
